FAERS Safety Report 9806001 (Version 1)
Quarter: 2014Q1

REPORT INFORMATION
  Report Type: Spontaneous
  Country: GB (occurrence: None)
  Receive Date: 20140107
  Receipt Date: 20140107
  Transmission Date: 20141002
  Serious: Yes (Hospitalization)
  Sender: FDA-Public Use
  Company Number: AUR-APL-2014-00012

PATIENT
  Age: 59 Year
  Sex: Female

DRUGS (3)
  1. CITALOPRAM [Suspect]
     Indication: PRODUCT USED FOR UNKNOWN INDICATION
     Dates: start: 201309
  2. ZAPONEX [Suspect]
     Indication: PRODUCT USED FOR UNKNOWN INDICATION
     Route: 048
     Dates: start: 20100831, end: 201309
  3. CLARYTHROMYCIN (CLARITHROMYCIN) [Concomitant]

REACTIONS (10)
  - Neutrophil count increased [None]
  - White blood cell count increased [None]
  - Respiratory failure [None]
  - Pneumonia [None]
  - Chronic obstructive pulmonary disease [None]
  - Electrocardiogram QT prolonged [None]
  - Drug dose omission [None]
  - Agitation [None]
  - Anxiety [None]
  - Hypoventilation [None]
